FAERS Safety Report 7394567-1 (Version None)
Quarter: 2011Q2

REPORT INFORMATION
  Report Type: 
  Country: None (occurrence: None)
  Receive Date: 20110405
  Receipt Date: 20091109
  Transmission Date: 20111010
  Serious: Yes (Hospitalization, Other)
  Sender: FDA-Public Use
  Company Number: US-BAYER-200939991NA

PATIENT
  Sex: Male
  Weight: 81.633 kg

DRUGS (17)
  1. CELEXA [Concomitant]
     Dosage: 20 MG ONCE A DAY
     Route: 048
  2. ACTOS [Concomitant]
  3. POTASSIUM [POTASSIUM] [Concomitant]
     Dosage: 10 MEQ, BID
     Route: 048
  4. RED BLOOD CELLS [Concomitant]
     Dosage: UNK
     Dates: start: 20051111
  5. LOPRESSOR [Concomitant]
     Dosage: 50 MG, BID
     Route: 048
  6. PROTAMINE SULFATE [Concomitant]
     Dosage: 3 X PER DAY
     Route: 042
     Dates: start: 20051111, end: 20051111
  7. LASIX [Concomitant]
     Dosage: 20 MG ONCE A DAY
     Route: 048
  8. NEURONTIN [Concomitant]
     Dosage: 300 MG, QID
     Route: 048
  9. ACETYLSALICYLIC ACID SRT [Concomitant]
     Indication: PRODUCT USED FOR UNKNOWN INDICATION
     Route: 048
  10. INSULIN [INSULIN] [Concomitant]
     Dosage: UNK
     Route: 042
     Dates: start: 20051111, end: 20051111
  11. LIPITOR [Concomitant]
     Dosage: 20 MG, QD
     Route: 048
  12. METFORMIN [Concomitant]
     Dosage: 1000 MG, BID
     Route: 048
  13. TRASYLOL [Suspect]
     Indication: CORONARY ARTERY BYPASS
     Dosage: 200 ML FOLLOWED BY 50 ML
     Route: 042
     Dates: start: 20051111, end: 20051111
  14. LISINOPRIL [Concomitant]
     Route: 048
  15. INSULIN [INSULIN] [Concomitant]
     Dosage: LONG-TERM
     Route: 058
  16. AMIODARONE HCL [Concomitant]
     Dosage: UNK
     Route: 042
     Dates: start: 20051111
  17. LEVOPHED [Concomitant]
     Dosage: UNK
     Route: 042
     Dates: start: 20051111

REACTIONS (11)
  - EMOTIONAL DISTRESS [None]
  - INJURY [None]
  - FEAR [None]
  - PAIN [None]
  - ANXIETY [None]
  - UNEVALUABLE EVENT [None]
  - RENAL FAILURE [None]
  - STRESS [None]
  - ANHEDONIA [None]
  - RENAL IMPAIRMENT [None]
  - RENAL INJURY [None]
